FAERS Safety Report 8735311 (Version 3)
Quarter: 2013Q4

REPORT INFORMATION
  Report Type: Report from Study
  Country: JP (occurrence: JP)
  Receive Date: 20120822
  Receipt Date: 20131101
  Transmission Date: 20140711
  Serious: Yes (Hospitalization)
  Sender: FDA-Public Use
  Company Number: JP-009507513-1208JPN006742

PATIENT
  Age: 32 Year
  Sex: Female
  Weight: 59.7 kg

DRUGS (21)
  1. ASENAPINE MALEATE-SCHIZOPHRENIA [Suspect]
     Indication: SCHIZOPHRENIA
     Dosage: ASENAPINE 5MG AND 10MG OR PLACEBO
     Route: 060
     Dates: start: 20120518, end: 20120609
  2. ASENAPINE MALEATE-SCHIZOPHRENIA [Suspect]
     Dosage: ASENAPINE 5MG OR 10MG
     Route: 060
     Dates: start: 20120609, end: 20120627
  3. ASENAPINE MALEATE-SCHIZOPHRENIA [Suspect]
     Dosage: 10 MG, BID
     Route: 060
     Dates: start: 20120627, end: 20120704
  4. ASENAPINE MALEATE-SCHIZOPHRENIA [Suspect]
     Dosage: 5 MG, BID
     Route: 060
     Dates: start: 20120704
  5. LENDORMIN [Suspect]
     Indication: INSOMNIA
     Dosage: 0.25 MG, QD
     Route: 048
     Dates: start: 20120404
  6. WYPAX [Suspect]
     Indication: INSOMNIA
     Dosage: 0.5 MG, QD
     Route: 048
     Dates: start: 20120404
  7. WYPAX [Suspect]
     Dosage: AS NEEDED
     Route: 048
     Dates: start: 20120410
  8. VENA [Suspect]
     Indication: INSOMNIA
     Dosage: 25 MG, BID
     Route: 048
     Dates: start: 20120330
  9. VENA [Suspect]
     Dosage: AS NEEDED
     Route: 048
     Dates: start: 20120410
  10. ATARAX P [Suspect]
     Indication: INSOMNIA
     Dosage: 50 MG, BID
     Route: 048
     Dates: start: 20120506
  11. PURSENNID (SENNOSIDES) [Concomitant]
     Indication: CONSTIPATION
     Dosage: 48 MG, QD
     Route: 048
     Dates: start: 20120330
  12. PARIET [Concomitant]
     Indication: GASTROINTESTINAL MUCOSAL DISORDER
     Dosage: 10 MG, QD
     Route: 048
     Dates: start: 20120330
  13. AKINETON TABLETS [Concomitant]
     Indication: EXTRAPYRAMIDAL DISORDER
     Dosage: 1 MG, BID
     Route: 048
     Dates: start: 20120417
  14. AKINETON TABLETS [Concomitant]
     Indication: EXTRAPYRAMIDAL DISORDER
     Route: 048
     Dates: start: 20120417
  15. RISUMIC [Concomitant]
     Indication: HYPOTENSION
     Dosage: 10 MG, BID
     Route: 048
     Dates: start: 20120330
  16. EFFORTIL [Concomitant]
     Indication: HYPOTENSION
     Dosage: 5 MG, TID
     Route: 048
     Dates: start: 20120330
  17. GASMOTIN [Concomitant]
     Indication: GASTROINTESTINAL MUCOSAL DISORDER
     Dosage: 5 MG, TID
     Route: 048
     Dates: start: 20120330
  18. PANTOSIN [Concomitant]
     Indication: CONSTIPATION
     Dosage: 3 (DOSAGE FORM)
     Route: 048
     Dates: start: 20120330
  19. MAGMITT [Concomitant]
     Indication: CONSTIPATION
     Dosage: 500 MG, TID
     Route: 048
     Dates: start: 20120330
  20. MUCOSTA [Concomitant]
     Indication: GASTROINTESTINAL MUCOSAL DISORDER
     Dosage: 100 MG, TID
     Route: 048
     Dates: start: 20120429
  21. PURSENNID (SENNA) [Concomitant]
     Indication: CONSTIPATION
     Route: 048
     Dates: start: 20120330

REACTIONS (1)
  - Hypotension [Recovered/Resolved]
